FAERS Safety Report 14417180 (Version 1)
Quarter: 2018Q1

REPORT INFORMATION
  Report Type: Spontaneous
  Country: ES (occurrence: ES)
  Receive Date: 20180122
  Receipt Date: 20180122
  Transmission Date: 20180509
  Serious: Yes (Hospitalization)
  Sender: FDA-Public Use
  Company Number: PHHY2017ES199298

PATIENT
  Age: 72 Year
  Sex: Male
  Weight: 74 kg

DRUGS (18)
  1. CEFAZOLIN [Concomitant]
     Active Substance: CEFAZOLIN
     Indication: ANTIBIOTIC PROPHYLAXIS
     Dosage: 3 G (1G X 3/DAY), QD
     Route: 042
     Dates: start: 20171122, end: 20171122
  2. METAMIZOLE [Concomitant]
     Active Substance: METAMIZOLE
     Indication: ANALGESIC THERAPY
     Dosage: 6 G (2 G, 3X/DAY), QD
     Route: 042
     Dates: start: 20171122, end: 20171124
  3. ONDANSETRON [Concomitant]
     Active Substance: ONDANSETRON
     Indication: ANTIEMETIC SUPPORTIVE CARE
     Dosage: 12 MG (4 MG, 3X/DAY), QD
     Route: 065
     Dates: start: 20171122, end: 20171124
  4. HEPARIN [Concomitant]
     Active Substance: HEPARIN SODIUM
     Indication: ANTICOAGULANT THERAPY
     Dosage: 3500 IU, QD
     Route: 058
     Dates: start: 20171122
  5. SITAGLIPTIN [Concomitant]
     Active Substance: SITAGLIPTIN
     Indication: DIABETES MELLITUS
     Dosage: 100 MG, QD
     Route: 048
     Dates: start: 20171123
  6. GABAPENTIN. [Suspect]
     Active Substance: GABAPENTIN
     Dosage: 600 MG (300 MG, 2X/DAY), QD
     Route: 048
     Dates: start: 20171201
  7. AMITRIPTYLINE [Suspect]
     Active Substance: AMITRIPTYLINE
     Indication: NEURALGIA
     Dosage: 75 MG (25 MG, 3X/DAY), QD
     Route: 048
     Dates: start: 20171127, end: 20171201
  8. AMITRIPTYLINE [Suspect]
     Active Substance: AMITRIPTYLINE
     Dosage: 25 MG, QD (ONLY AT NIGHT)
     Route: 048
     Dates: start: 20171201
  9. CEFAZOLIN [Concomitant]
     Active Substance: CEFAZOLIN
     Dosage: 2 G, QD
     Route: 042
     Dates: start: 20171122, end: 20171124
  10. PARACETAMOL [Concomitant]
     Active Substance: ACETAMINOPHEN
     Dosage: 4 G (1G X 4/DAY), QD
     Route: 048
     Dates: start: 20171124
  11. AMLODIPINE [Concomitant]
     Active Substance: AMLODIPINE BESYLATE
     Indication: HYPERTENSION
     Dosage: 5 MG, QD
     Route: 048
     Dates: start: 20171123
  12. VALSARTAN. [Concomitant]
     Active Substance: VALSARTAN
     Indication: HYPERTENSION
     Dosage: 40 MG, QD
     Route: 048
     Dates: start: 20171123
  13. ONDANSETRON [Concomitant]
     Active Substance: ONDANSETRON
     Dosage: 4 MG, (1X/DAY), QD
     Route: 065
     Dates: start: 20171124, end: 20171127
  14. METAMIZOLE [Concomitant]
     Active Substance: METAMIZOLE
     Dosage: 2300 MG (575 MG, 4X/DAY), QD
     Route: 048
     Dates: start: 20171124
  15. GABAPENTIN. [Suspect]
     Active Substance: GABAPENTIN
     Indication: NEURALGIA
     Dosage: 900 MG (300 MG, 3X/DAY), QD
     Route: 048
     Dates: start: 20171127, end: 20171201
  16. PARACETAMOL [Concomitant]
     Active Substance: ACETAMINOPHEN
     Indication: ANALGESIC THERAPY
     Dosage: 3 G (1 G, 3X/DAY), QD
     Route: 042
     Dates: start: 20171122, end: 20171122
  17. DEXPANTHENOL. [Concomitant]
     Active Substance: DEXPANTHENOL
     Indication: ANTIINFLAMMATORY THERAPY
     Dosage: 1000 MG (500 MG, 2X/DAY), QD
     Route: 030
     Dates: start: 20171122, end: 20171127
  18. POTASSIUM CHLORIDE. [Concomitant]
     Active Substance: POTASSIUM CHLORIDE
     Indication: HYPOKALAEMIA
     Dosage: 10 MEQ, QD
     Route: 042
     Dates: start: 20171122, end: 20171127

REACTIONS (1)
  - Nervous system disorder [Recovered/Resolved]

NARRATIVE: CASE EVENT DATE: 20171129
